FAERS Safety Report 5701090-6 (Version None)
Quarter: 2008Q2

REPORT INFORMATION
  Report Type: 
  Country: None (occurrence: None)
  Receive Date: 20080407
  Receipt Date: 20080325
  Transmission Date: 20081010
  Serious: Yes (Life-Threatening, Other)
  Sender: FDA-Public Use
  Company Number: 2008VX000469

PATIENT
  Sex: Female
  Weight: 2.9 kg

DRUGS (6)
  1. ANCOTIL (FLUCYOSINE) [Suspect]
     Indication: CANDIDIASIS
     Dosage: 75 MG; QD; IV
     Route: 042
     Dates: start: 20080201, end: 20080224
  2. AMBISOME [Concomitant]
  3. CASPOFUNGIN [Concomitant]
  4. VANCOMYCIN [Concomitant]
  5. INOTROPES [Concomitant]
  6. AMIKARIN [Concomitant]

REACTIONS (3)
  - CARDIOTOXICITY [None]
  - MYOCARDIAL INFARCTION [None]
  - NEONATAL DISORDER [None]
